FAERS Safety Report 9820431 (Version 1)
Quarter: 2014Q1

REPORT INFORMATION
  Report Type: Spontaneous
  Country: US (occurrence: None)
  Receive Date: 20140114
  Receipt Date: 20140114
  Transmission Date: 20141002
  Serious: Yes (Disabling, Other)
  Sender: FDA-Public Use
  Company Number: None

PATIENT
  Age: 23 Year
  Sex: Female
  Weight: 47.63 kg

DRUGS (9)
  1. NEXIUM [Suspect]
     Indication: GASTRIC ULCER
     Dosage: 40 MG 1 PILL EACH MORNING ONCE A DAY BY MOUTH WITH WATER
     Route: 048
     Dates: start: 201208, end: 201308
  2. RITALIN [Concomitant]
  3. SINGULAIR [Concomitant]
  4. CARAFATE [Concomitant]
  5. ZYRTECT [Concomitant]
  6. BIO-BODY BALANCE [Concomitant]
  7. DR. OHIRA^S PROBIOTIC TABLET [Concomitant]
  8. ALOE VERA JUICE [Concomitant]
  9. XCLEAR [Concomitant]

REACTIONS (4)
  - Musculoskeletal disorder [None]
  - Condition aggravated [None]
  - Weight decreased [None]
  - Pain [None]
